FAERS Safety Report 5907456-3 (Version None)
Quarter: 2008Q4

REPORT INFORMATION
  Report Type: 
  Country: None (occurrence: None)
  Receive Date: 20081003
  Receipt Date: 20080929
  Transmission Date: 20090506
  Serious: Yes (Hospitalization)
  Sender: FDA-Public Use
  Company Number: B0526861A

PATIENT
  Age: 69 Year
  Sex: Female

DRUGS (7)
  1. PAXIL [Suspect]
     Indication: DEPRESSION
     Dosage: 10MG PER DAY
     Route: 048
     Dates: start: 20080609, end: 20080611
  2. CARBIDOPA + LEVODOPA [Concomitant]
     Indication: PARKINSON'S DISEASE
     Dosage: 150MG PER DAY
     Route: 048
     Dates: start: 20080526, end: 20080627
  3. PERMAX [Concomitant]
     Indication: PARKINSON'S DISEASE
     Dosage: 50MCG THREE TIMES PER DAY
     Route: 048
     Dates: start: 20060203, end: 20080627
  4. ARTANE [Concomitant]
     Indication: PARKINSON'S DISEASE
     Dosage: 4MG PER DAY
     Route: 048
     Dates: start: 20051213, end: 20080627
  5. NAUZELIN [Concomitant]
     Indication: PARKINSON'S DISEASE
     Dosage: 30MG PER DAY
     Route: 048
     Dates: start: 20080526, end: 20080625
  6. MAGMITT [Concomitant]
     Indication: CONSTIPATION
     Dosage: 990MG PER DAY
     Route: 048
     Dates: start: 20080526, end: 20080627
  7. PURSENNID [Concomitant]
     Indication: CONSTIPATION
     Dosage: 24MG PER DAY
     Route: 048
     Dates: start: 20080526, end: 20080627

REACTIONS (8)
  - AGITATION [None]
  - ANOREXIA [None]
  - DEMENTIA WITH LEWY BODIES [None]
  - HYPERSENSITIVITY [None]
  - IRRITABILITY [None]
  - RESTLESSNESS [None]
  - SEROTONIN SYNDROME [None]
  - TREMOR [None]
